FAERS Safety Report 19030599 (Version 1)
Quarter: 2021Q1

REPORT INFORMATION
  Report Type: Spontaneous
  Country: US (occurrence: US)
  Receive Date: 20210318
  Receipt Date: 20210318
  Transmission Date: 20210420
  Serious: Yes (Hospitalization)
  Sender: FDA-Public Use
  Company Number: None

PATIENT
  Sex: Female
  Weight: 75.5 kg

DRUGS (4)
  1. SGN?35 (BRENTUXIMAB VEDOTIN) [Suspect]
     Active Substance: BRENTUXIMAB VEDOTIN
     Dates: end: 20210224
  2. DACARBAZINE. [Suspect]
     Active Substance: DACARBAZINE
     Dates: end: 20210224
  3. DOXORUBICIN HYDROCHLORIDE. [Suspect]
     Active Substance: DOXORUBICIN HYDROCHLORIDE
     Dates: end: 20210224
  4. VINBLASTINE SULFATE. [Suspect]
     Active Substance: VINBLASTINE SULFATE
     Dates: end: 20210224

REACTIONS (8)
  - Abdominal pain [None]
  - Hyponatraemia [None]
  - Atypical pneumonia [None]
  - Pleural effusion [None]
  - Pneumonitis [None]
  - Diarrhoea [None]
  - Inflammation [None]
  - Dyspnoea [None]

NARRATIVE: CASE EVENT DATE: 20210315
